FAERS Safety Report 18616953 (Version 1)
Quarter: 2020Q4

REPORT INFORMATION
  Report Type: Report from Study
  Country: US (occurrence: US)
  Receive Date: 20201215
  Receipt Date: 20201215
  Transmission Date: 20210114
  Serious: Yes (Death, Other)
  Sender: FDA-Public Use
  Company Number: US-ACADIA PHARMACEUTICALS INC.-ACA-2020-PIM-003758

PATIENT
  Sex: Male

DRUGS (1)
  1. NUPLAZID [Suspect]
     Active Substance: PIMAVANSERIN TARTRATE
     Indication: PRODUCT USED FOR UNKNOWN INDICATION
     Dosage: 34 MILLIGRAM, QD EVERY MORNING
     Route: 048
     Dates: start: 20201105

REACTIONS (5)
  - Adverse drug reaction [Unknown]
  - Asthenia [Not Recovered/Not Resolved]
  - Death [Fatal]
  - Communication disorder [Not Recovered/Not Resolved]
  - Confusional state [Not Recovered/Not Resolved]
